FAERS Safety Report 11844593 (Version 1)
Quarter: 2015Q4

REPORT INFORMATION
  Report Type: Spontaneous
  Country: US (occurrence: US)
  Receive Date: 20151217
  Receipt Date: 20151217
  Transmission Date: 20160305
  Serious: Yes (Hospitalization, Other)
  Sender: FDA-Public Use
  Company Number: US-TEVA-604574USA

PATIENT
  Age: 67 Year
  Sex: Male
  Weight: 97.61 kg

DRUGS (1)
  1. DULOXETINE. [Suspect]
     Active Substance: DULOXETINE
     Indication: FIBROMYALGIA
     Route: 065
     Dates: start: 201412

REACTIONS (14)
  - Hospitalisation [Unknown]
  - Nausea [Unknown]
  - Eye pruritus [Unknown]
  - Pruritus [Unknown]
  - Muscle twitching [Unknown]
  - Seizure [Unknown]
  - Dyspnoea [Unknown]
  - Heart rate increased [Unknown]
  - Dyskinesia [Unknown]
  - Hypertension [Unknown]
  - Balance disorder [Unknown]
  - Headache [Unknown]
  - Feeling abnormal [Unknown]
  - Dizziness [Unknown]

NARRATIVE: CASE EVENT DATE: 20151013
